FAERS Safety Report 10212016 (Version 2)
Quarter: 2014Q2

REPORT INFORMATION
  Report Type: Spontaneous
  Country: US (occurrence: US)
  Receive Date: 20140602
  Receipt Date: 20140602
  Transmission Date: 20141212
  Serious: No
  Sender: FDA-Public Use
  Company Number: US-AMGEN-USASP2014024343

PATIENT
  Age: 14 Month
  Sex: 0

DRUGS (2)
  1. ENBREL [Suspect]
     Indication: PRODUCT USED FOR UNKNOWN INDICATION
     Dosage: 50 MG, UNK
     Route: 063
     Dates: start: 20140402
  2. VITAMIN D                          /00107901/ [Concomitant]
     Dosage: 1 DROP, QD
     Route: 048

REACTIONS (3)
  - Pyrexia [Unknown]
  - Pain [Unknown]
  - Rhinorrhoea [Unknown]
